FAERS Safety Report 7947221-9 (Version None)
Quarter: 2011Q4

REPORT INFORMATION
  Report Type: 
  Country: None (occurrence: None)
  Receive Date: 20111129
  Receipt Date: 20111117
  Transmission Date: 20120403
  Serious: Yes (Other)
  Sender: FDA-Public Use
  Company Number: CN-ASTRAZENECA-2011SE69900

PATIENT
  Sex: Female

DRUGS (2)
  1. FENTANYL-100 [Suspect]
     Indication: ANAESTHESIA
     Dosage: 1 UG/KG
     Route: 042
  2. PROPOFOL [Suspect]
     Indication: ANAESTHESIA
     Dosage: 2 MG/KG
     Route: 042

REACTIONS (5)
  - DIZZINESS [None]
  - RESPIRATORY DEPRESSION [None]
  - MUSCLE SPASMS [None]
  - NAUSEA [None]
  - INJECTION SITE PAIN [None]
